FAERS Safety Report 4719317-6 (Version None)
Quarter: 2005Q3

REPORT INFORMATION
  Report Type: 
  Country: None (occurrence: None)
  Receive Date: 20050721
  Receipt Date: 20050303
  Transmission Date: 20060218
  Serious: No
  Sender: FDA-Public Use
  Company Number: US-GLAXOSMITHKLINE-A0548206A

PATIENT
  Age: 57 Year
  Sex: Female

DRUGS (3)
  1. MALARONE [Suspect]
     Indication: MALARIA
     Dosage: 250MG PER DAY
     Route: 048
     Dates: start: 20050208, end: 20050216
  2. SYNTHROID [Concomitant]
  3. LIPITOR [Concomitant]

REACTIONS (2)
  - DIARRHOEA [None]
  - HEADACHE [None]
